FAERS Safety Report 17909437 (Version 1)
Quarter: 2020Q2

REPORT INFORMATION
  Report Type: Spontaneous
  Country: DE (occurrence: DE)
  Receive Date: 20200618
  Receipt Date: 20200618
  Transmission Date: 20200714
  Serious: Yes (Hospitalization, Other)
  Sender: FDA-Public Use
  Company Number: DE-AUROBINDO-AUR-APL-2020-029357

PATIENT
  Sex: Female
  Weight: 85 kg

DRUGS (7)
  1. LETROZOLE. [Suspect]
     Active Substance: LETROZOLE
     Indication: BREAST CANCER METASTATIC
     Dosage: 2.5 MILLIGRAM, ONCE A DAY (DOSAGE TEXT: 2.5 MG, QD)
     Route: 048
     Dates: start: 20200505
  2. METOPROLOL. [Concomitant]
     Active Substance: METOPROLOL
     Dosage: UNK, ONCE A DAY (DOSAGE TEXT: QD (HALF DOSE OF 47.5 MG ONCE IN THE MORNIG))
     Route: 065
     Dates: start: 20200604
  3. HYDROCHLOROTHIAZIDE. [Concomitant]
     Active Substance: HYDROCHLOROTHIAZIDE
     Indication: HYPERTENSION
     Dosage: 2.5 MILLIGRAM
     Route: 065
     Dates: start: 20150101
  4. XARELTO [Concomitant]
     Active Substance: RIVAROXABAN
     Indication: ATRIAL FIBRILLATION
     Dosage: UNK
     Route: 065
     Dates: start: 20190101
  5. METOPROLOL. [Concomitant]
     Active Substance: METOPROLOL
     Indication: HYPERTENSION
     Dosage: 47.5 MILLIGRAM
     Route: 065
     Dates: start: 20150101
  6. RAMIPRIL. [Concomitant]
     Active Substance: RAMIPRIL
     Indication: HYPERTENSION
     Dosage: 5 MILLIGRAM
     Route: 065
     Dates: start: 20150101
  7. KISQALI [Suspect]
     Active Substance: RIBOCICLIB
     Indication: BREAST CANCER METASTATIC
     Dosage: 600 MILLIGRAM, ONCE A DAY (600 MG, QD (SCHEMA 21 DAYS INTAKE, 7 DAYS PAUSE))
     Route: 048
     Dates: start: 20200505

REACTIONS (2)
  - Electrocardiogram QT prolonged [Recovering/Resolving]
  - Atrioventricular block second degree [Unknown]

NARRATIVE: CASE EVENT DATE: 20200602
